FAERS Safety Report 8011992-6 (Version None)
Quarter: 2011Q4

REPORT INFORMATION
  Report Type: 
  Country: None (occurrence: None)
  Receive Date: 20111228
  Receipt Date: 20111214
  Transmission Date: 20120403
  Serious: Yes (Other)
  Sender: FDA-Public Use
  Company Number: IE-GLAXOSMITHKLINE-B0731817A

PATIENT
  Sex: Male

DRUGS (9)
  1. RAMIPRIL [Concomitant]
  2. DEXAMETHASONE [Concomitant]
     Dosage: 2MG PER DAY
     Route: 048
  3. PANTOPRAZOLE [Concomitant]
     Dosage: 40MG PER DAY
     Route: 048
  4. ANTIHYPERTENSIVES [Concomitant]
     Indication: BLOOD PRESSURE
     Route: 065
  5. VOTRIENT [Suspect]
     Indication: RENAL CELL CARCINOMA
     Dosage: 800MG PER DAY
     Route: 048
     Dates: start: 20110607, end: 20110704
  6. LIPITOR [Concomitant]
     Dosage: 10MG PER DAY
     Route: 048
  7. ISTIN [Concomitant]
     Dosage: 5MG PER DAY
     Route: 048
  8. FERROUS SULFATE TAB [Concomitant]
     Route: 048
  9. UNKNOWN MEDICATION [Concomitant]
     Indication: DISEASE PROGRESSION
     Route: 065

REACTIONS (14)
  - BLOOD PRESSURE INCREASED [None]
  - MOUTH ULCERATION [None]
  - FATIGUE [None]
  - HYPOAESTHESIA [None]
  - EYE PAIN [None]
  - NEUROPATHY PERIPHERAL [None]
  - HEADACHE [None]
  - FLANK PAIN [None]
  - SWELLING FACE [None]
  - ABNORMAL SENSATION IN EYE [None]
  - VISION BLURRED [None]
  - TACHYCARDIA [None]
  - PERIPHERAL COLDNESS [None]
  - HYPERTENSION [None]
